FAERS Safety Report 18288854 (Version 1)
Quarter: 2020Q3

REPORT INFORMATION
  Report Type: Spontaneous
  Country: CN (occurrence: CN)
  Receive Date: 20200921
  Receipt Date: 20200921
  Transmission Date: 20201103
  Serious: Yes (Other)
  Sender: FDA-Public Use
  Company Number: CN-FRESENIUS KABI-FK202009542

PATIENT
  Age: 94 Year
  Sex: Male
  Weight: 70 kg

DRUGS (3)
  1. LIPOVENOES MCT 10% [Suspect]
     Active Substance: EGG PHOSPHOLIPIDS\GLYCERIN\MEDIUM-CHAIN TRIGLYCERIDES\SOYBEAN OIL
     Indication: PNEUMONITIS
     Dosage: 250ML  QD
     Route: 041
     Dates: start: 20200830, end: 20200831
  2. AMBROXOL HYDROCHLORIDE [Concomitant]
     Active Substance: AMBROXOL HYDROCHLORIDE
     Indication: PNEUMONITIS
     Dosage: 30MG,BID
     Route: 041
     Dates: start: 20200827, end: 20200901
  3. SODIUM CHLORIDE. [Concomitant]
     Active Substance: SODIUM CHLORIDE
     Indication: VEHICLE SOLUTION USE
     Dosage: 100ML,BID
     Route: 041
     Dates: start: 20200827, end: 20200901

REACTIONS (2)
  - Cardiac arrest [Recovered/Resolved]
  - Respiratory distress [Recovered/Resolved]

NARRATIVE: CASE EVENT DATE: 20200830
